FAERS Safety Report 15430167 (Version 1)
Quarter: 2018Q3

REPORT INFORMATION
  Report Type: Other
  Country: NL (occurrence: NL)
  Receive Date: 20180926
  Receipt Date: 20180926
  Transmission Date: 20181010
  Serious: Yes (Other)
  Sender: FDA-Public Use
  Company Number: NL-APOTEX-2018AP021236

PATIENT
  Sex: Male

DRUGS (2)
  1. PAROXETINE. [Suspect]
     Active Substance: PAROXETINE
     Dosage: 30 MG, QD
     Route: 065
     Dates: start: 20140101
  2. PAROXETINE. [Suspect]
     Active Substance: PAROXETINE
     Indication: NEGATIVE THOUGHTS
     Dosage: 15 MG, QD
     Route: 065
     Dates: end: 20180401

REACTIONS (7)
  - Depressed level of consciousness [Recovering/Resolving]
  - Fatigue [Recovering/Resolving]
  - Dry eye [Recovering/Resolving]
  - Feeling abnormal [Recovering/Resolving]
  - Dry skin [Recovering/Resolving]
  - Disturbance in attention [Recovering/Resolving]
  - Rash [Recovering/Resolving]

NARRATIVE: CASE EVENT DATE: 20160101
